FAERS Safety Report 6123342-0 (Version None)
Quarter: 2009Q1

REPORT INFORMATION
  Report Type: 
  Country: None (occurrence: None)
  Receive Date: 20090318
  Receipt Date: 20090311
  Transmission Date: 20090719
  Serious: Yes (Hospitalization)
  Sender: FDA-Public Use
  Company Number: US-ELI_LILLY_AND_COMPANY-US200811005166

PATIENT
  Sex: Female
  Weight: 115.65 kg

DRUGS (21)
  1. BYETTA [Suspect]
     Indication: TYPE 2 DIABETES MELLITUS
     Dosage: 5 UG, 2/D
     Route: 058
     Dates: start: 20050501, end: 20050601
  2. BYETTA [Suspect]
     Dosage: 10 UG, 2/D
     Route: 058
     Dates: start: 20050601
  3. LANTUS [Concomitant]
     Indication: TYPE 2 DIABETES MELLITUS
     Dosage: 73 U, EACH EVENING
     Route: 058
  4. HUMALOG [Concomitant]
     Indication: TYPE 2 DIABETES MELLITUS
     Dosage: 7 U, EACH MORNING
     Route: 058
  5. HUMALOG [Concomitant]
     Dosage: 16 U, 2/D
     Route: 058
  6. HUMALOG [Concomitant]
     Dosage: UNK, AS NEEDED
     Route: 058
  7. GLUCOTROL [Concomitant]
     Indication: TYPE 2 DIABETES MELLITUS
     Dosage: 10 MG, DAILY (1/D)
     Route: 048
  8. COUMADIN [Concomitant]
     Indication: CARDIAC DISORDER
     Dosage: 10 MG, DAILY (1/D)
     Route: 048
  9. COUMADIN [Concomitant]
     Dosage: 5 MG, DAILY (1/D)
     Route: 048
  10. THIOTHIXENE [Concomitant]
     Indication: MENTAL DISORDER
     Dosage: 5 MG, 2/D
     Route: 048
  11. POTASSIUM CHLORIDE [Concomitant]
     Indication: ELECTROLYTE SUBSTITUTION THERAPY
     Dosage: 50 MEQ, DAILY (1/D)
     Route: 048
  12. BUMEX [Concomitant]
     Indication: POLYURIA
     Dosage: 2 MG, 3/D
     Route: 048
  13. SYNTHROID [Concomitant]
     Indication: HYPOTHYROIDISM
     Dosage: 150 UG, DAILY (1/D)
     Route: 048
     Dates: start: 19820101
  14. NEXIUM [Concomitant]
     Indication: DYSPEPSIA
     Dosage: 40 MG, DAILY (1/D)
     Route: 048
  15. ZETIA [Concomitant]
     Indication: DYSPEPSIA
     Dosage: 10 MG, DAILY (1/D)
     Route: 048
  16. PRAVACHOL [Concomitant]
     Indication: BLOOD CHOLESTEROL
     Dosage: 40 MG, DAILY (1/D)
     Route: 048
  17. AMBIEN [Concomitant]
     Indication: INSOMNIA
     Dosage: 10 MG, DAILY (1/D)
     Route: 048
  18. AMITRIPTLINE HYDROCHLORIDE TAB [Concomitant]
     Indication: DEPRESSION
     Dosage: 10 MG, DAILY (1/D)
     Route: 048
  19. AMITRIPTLINE HYDROCHLORIDE TAB [Concomitant]
     Dosage: 100 MG, EACH EVENING
     Route: 048
  20. TRICOR [Concomitant]
     Indication: BLOOD CHOLESTEROL
     Dosage: 145 MG, DAILY (1/D)
     Route: 048
  21. VITAMIN D [Concomitant]
     Indication: PROPHYLAXIS
     Dosage: 1000 MG, 2/D
     Route: 048

REACTIONS (29)
  - ASTHENIA [None]
  - BACK PAIN [None]
  - BLOOD GLUCOSE FLUCTUATION [None]
  - CONCUSSION [None]
  - CONTUSION [None]
  - COUGH [None]
  - DEHYDRATION [None]
  - DEMENTIA ALZHEIMER'S TYPE [None]
  - DEPRESSION [None]
  - DIARRHOEA [None]
  - FALL [None]
  - GAIT DISTURBANCE [None]
  - HEADACHE [None]
  - INFLUENZA [None]
  - LOCALISED INFECTION [None]
  - LOWER LIMB FRACTURE [None]
  - MEMORY IMPAIRMENT [None]
  - NASAL CONGESTION [None]
  - NERVE INJURY [None]
  - PAIN [None]
  - PERIPHERAL VASCULAR DISORDER [None]
  - PNEUMONIA [None]
  - POSTOPERATIVE WOUND INFECTION [None]
  - PYREXIA [None]
  - SENSORY LOSS [None]
  - SKIN ULCER [None]
  - THIRST [None]
  - WEIGHT DECREASED [None]
  - WOUND INFECTION BACTERIAL [None]
